FAERS Safety Report 11802463 (Version 1)
Quarter: 2015Q4

REPORT INFORMATION
  Report Type: Spontaneous
  Country: US (occurrence: US)
  Receive Date: 20151204
  Receipt Date: 20151204
  Transmission Date: 20160305
  Serious: No
  Sender: FDA-Public Use
  Company Number: US-PFIZER INC-2015378695

PATIENT
  Age: 75 Year
  Sex: Female
  Weight: 56 kg

DRUGS (11)
  1. PROPRANOLOL HCL [Concomitant]
     Active Substance: PROPRANOLOL HYDROCHLORIDE
     Indication: MIGRAINE
  2. ZOMETA [Concomitant]
     Active Substance: ZOLEDRONIC ACID
  3. LEVOTHYROXINE. [Concomitant]
     Active Substance: LEVOTHYROXINE
  4. PROAIR HFA [Concomitant]
     Active Substance: ALBUTEROL SULFATE
     Dosage: UNK, AS NEEDED
  5. OXYCODONE [Concomitant]
     Active Substance: OXYCODONE
  6. TRAVATAN [Concomitant]
     Active Substance: TRAVOPROST
  7. SUTENT [Suspect]
     Active Substance: SUNITINIB MALATE
     Indication: RENAL CANCER METASTATIC
     Dosage: 25 MG, CYCLIC (SUTENT, 25MG 28 DAYS ON/14 DAYS OFF)
     Dates: start: 20151027, end: 20151111
  8. ZOFRAN [Concomitant]
     Active Substance: ONDANSETRON HYDROCHLORIDE
  9. TIMOLOL. [Concomitant]
     Active Substance: TIMOLOL
  10. PROPRANOLOL HCL [Concomitant]
     Active Substance: PROPRANOLOL HYDROCHLORIDE
     Indication: HEADACHE
  11. PRILOSEC [Concomitant]
     Active Substance: OMEPRAZOLE MAGNESIUM

REACTIONS (7)
  - Nausea [Unknown]
  - Paraesthesia [Unknown]
  - Yellow skin [Unknown]
  - Somnolence [Unknown]
  - Decreased appetite [Unknown]
  - Fatigue [Unknown]
  - Abdominal pain [Unknown]
